FAERS Safety Report 4873180-1 (Version None)
Quarter: 2005Q4

REPORT INFORMATION
  Report Type: 
  Country: None (occurrence: None)
  Receive Date: 20051201
  Receipt Date: 20050818
  Transmission Date: 20060501
  Serious: No
  Sender: FDA-Public Use
  Company Number: 2005PV001274

PATIENT
  Age: 63 Year
  Sex: Female
  Weight: 127.0072 kg

DRUGS (9)
  1. BYETTA [Suspect]
     Indication: DIABETES MELLITUS NON-INSULIN-DEPENDENT
     Dosage: 5 MCG;BID; SC
     Route: 058
     Dates: start: 20050816, end: 20050817
  2. GLUCOPHAGE [Concomitant]
  3. AMARYL [Concomitant]
  4. HUMULIN [Concomitant]
  5. TOPAMAX [Concomitant]
  6. NEURONTIN [Concomitant]
  7. POTASSIUM [Concomitant]
  8. LASIX [Concomitant]
  9. MOBIC [Concomitant]

REACTIONS (6)
  - BLOOD GLUCOSE INCREASED [None]
  - DIARRHOEA [None]
  - DIZZINESS [None]
  - DRY MOUTH [None]
  - SEDATION [None]
  - SOMNOLENCE [None]
